FAERS Safety Report 7937920 (Version 4)
Quarter: 2013Q4

REPORT INFORMATION
  Report Type: Spontaneous
  Country: JP (occurrence: JP)
  Receive Date: 20110510
  Receipt Date: 20131015
  Transmission Date: 20140711
  Serious: Yes (Life-Threatening)
  Sender: FDA-Public Use
  Company Number: JP-PFIZER INC-2011099244

PATIENT
  Age: 37 Year
  Sex: Female
  Weight: 51.2 kg

DRUGS (9)
  1. SOLU-MEDROL [Suspect]
     Indication: SUBACUTE HEPATIC FAILURE
     Dosage: 1 G, 1X/DAY
     Route: 042
     Dates: start: 20110507, end: 20110507
  2. SOLU-MEDROL [Suspect]
     Indication: STEROID THERAPY
  3. REMINARON [Suspect]
     Indication: SUBACUTE HEPATIC FAILURE
     Dosage: UNK
     Route: 042
     Dates: start: 20110507, end: 20110507
  4. REMINARON [Suspect]
     Indication: DISSEMINATED INTRAVASCULAR COAGULATION
  5. VITAMIN K2 [Suspect]
     Indication: SUBACUTE HEPATIC FAILURE
     Dosage: UNK
     Route: 042
     Dates: start: 20110507, end: 20110507
  6. VITAMIN K2 [Suspect]
     Indication: DISSEMINATED INTRAVASCULAR COAGULATION
  7. GASTER [Suspect]
     Indication: SUBACUTE HEPATIC FAILURE
     Dosage: UNK
     Route: 048
     Dates: start: 20110507, end: 20110507
  8. GASTER [Suspect]
     Indication: PROPHYLAXIS
  9. VITAMEDIN INTRAVENOUS [Concomitant]
     Indication: HEPATIC FAILURE
     Dosage: UNK
     Route: 042
     Dates: start: 20110507

REACTIONS (1)
  - Anaphylactic reaction [Recovered/Resolved]
